FAERS Safety Report 7208700-5 (Version None)
Quarter: 2011Q1

REPORT INFORMATION
  Report Type: 
  Country: None (occurrence: None)
  Receive Date: 20110104
  Receipt Date: 20101216
  Transmission Date: 20110831
  Serious: No
  Sender: FDA-Public Use
  Company Number: US-PFIZER INC-2010174489

PATIENT
  Sex: Male
  Weight: 97 kg

DRUGS (2)
  1. ZOCOR [Concomitant]
     Dosage: UNK
     Route: 048
  2. LIPITOR [Suspect]
     Indication: BLOOD CHOLESTEROL INCREASED
     Dosage: 10 MG, 1X/DAY
     Route: 048

REACTIONS (2)
  - MYALGIA [None]
  - MUSCULAR WEAKNESS [None]
